FAERS Safety Report 16358057 (Version 1)
Quarter: 2019Q2

REPORT INFORMATION
  Report Type: Spontaneous
  Country: US (occurrence: US)
  Receive Date: 20190527
  Receipt Date: 20190527
  Transmission Date: 20190711
  Serious: No
  Sender: FDA-Public Use
  Company Number: PHEH2019US021815

PATIENT
  Sex: Female

DRUGS (1)
  1. DUREZOL [Suspect]
     Active Substance: DIFLUPREDNATE
     Indication: TOXOPLASMOSIS
     Route: 065

REACTIONS (3)
  - Asthenopia [Unknown]
  - Product use in unapproved indication [Unknown]
  - Vision blurred [Unknown]
